FAERS Safety Report 13853428 (Version 2)
Quarter: 2017Q3

REPORT INFORMATION
  Report Type: Spontaneous
  Country: US (occurrence: US)
  Receive Date: 20170809
  Receipt Date: 20170810
  Transmission Date: 20171127
  Serious: Yes (Other)
  Sender: FDA-Public Use
  Company Number: US-PFIZER INC-2017332555

PATIENT
  Age: 69 Year
  Sex: Female
  Weight: 147 kg

DRUGS (29)
  1. CLONAZEPAM. [Concomitant]
     Active Substance: CLONAZEPAM
     Indication: ANXIETY
     Dosage: 1 MG, DAILY AS NEEDED
     Route: 048
  2. ESCITALOPRAM [Concomitant]
     Active Substance: ESCITALOPRAM OXALATE
     Indication: DEPRESSION
     Dosage: 20 MG, DAILY
     Route: 048
  3. LYRICA [Concomitant]
     Active Substance: PREGABALIN
     Indication: NEURALGIA
     Dosage: 75 MG, 3X/DAY
  4. NYSTATIN. [Concomitant]
     Active Substance: NYSTATIN
     Dosage: UNK, 3X/DAY AS NEEDED
     Route: 061
  5. PROMETHAZINE WITH CODEINE [Concomitant]
     Active Substance: CODEINE PHOSPHATE\PROMETHAZINE HYDROCHLORIDE
     Indication: COUGH
     Dosage: UNK, AS NEEDED Q6H
  6. PROMETHAZINE WITH CODEINE [Concomitant]
     Active Substance: CODEINE PHOSPHATE\PROMETHAZINE HYDROCHLORIDE
     Indication: HYPERSENSITIVITY
  7. NEUPRO [Concomitant]
     Active Substance: ROTIGOTINE
     Indication: RESTLESS LEGS SYNDROME
     Dosage: 8 MG, DAILY
     Route: 061
  8. CELECOXIB. [Concomitant]
     Active Substance: CELECOXIB
     Indication: JOINT SWELLING
     Dosage: 200 MG, DAILY
     Route: 048
  9. CELECOXIB. [Concomitant]
     Active Substance: CELECOXIB
     Indication: ARTHRALGIA
  10. KETOCONAZOLE. [Concomitant]
     Active Substance: KETOCONAZOLE
     Indication: VULVOVAGINAL PRURITUS
     Dosage: UNK, AS NEEDED
     Route: 067
  11. PROMETHAZINE [Concomitant]
     Active Substance: PROMETHAZINE\PROMETHAZINE HYDROCHLORIDE
     Indication: GASTROOESOPHAGEAL REFLUX DISEASE
     Dosage: 1-2 DF, AS NEEDED Q6
     Route: 048
  12. ESTRACE [Concomitant]
     Active Substance: ESTRADIOL
     Indication: HORMONE LEVEL ABNORMAL
  13. FUROSEMIDE. [Concomitant]
     Active Substance: FUROSEMIDE
     Indication: OEDEMA PERIPHERAL
     Dosage: 40 MG, DAILY AS NEEDED
     Route: 048
  14. LIDOCAINE. [Concomitant]
     Active Substance: LIDOCAINE
     Indication: ARTHROPOD BITE
     Dosage: UNK, AS NEEDED
     Route: 061
  15. FLECTOR [Suspect]
     Active Substance: DICLOFENAC EPOLAMINE
     Indication: SOFT TISSUE INJURY
  16. IPRATROPIUM BROMIDE. [Concomitant]
     Active Substance: IPRATROPIUM BROMIDE
     Indication: RHINORRHOEA
  17. POTASSIUM ER [Concomitant]
     Dosage: 20 MEQ, DAILY AS NEEDED
     Route: 048
  18. TIZANIDINE. [Concomitant]
     Active Substance: TIZANIDINE
     Indication: MUSCLE RELAXANT THERAPY
     Dosage: 4 MG, AS NEEDED (Q8H)
     Route: 048
  19. TRAZODONE [Concomitant]
     Active Substance: TRAZODONE HYDROCHLORIDE
     Indication: INSOMNIA
     Dosage: 1-2 DF, AS NEEDED IN THE EVENING
     Route: 048
  20. PROMETHAZINE WITH CODEINE [Concomitant]
     Active Substance: CODEINE PHOSPHATE\PROMETHAZINE HYDROCHLORIDE
     Indication: NASOPHARYNGITIS
  21. LEVOTHYROXINE. [Concomitant]
     Active Substance: LEVOTHYROXINE
     Indication: THYROID DISORDER
     Dosage: 0.125 MG, DAILY
     Route: 048
  22. LOVASTATIN. [Concomitant]
     Active Substance: LOVASTATIN
     Indication: BLOOD CHOLESTEROL ABNORMAL
     Dosage: 40 MG, DAILY
     Route: 048
  23. ESTRACE [Concomitant]
     Active Substance: ESTRADIOL
     Indication: VAGINAL DISORDER
     Dosage: UNK, ON M, W, F
     Route: 067
  24. FLECTOR [Suspect]
     Active Substance: DICLOFENAC EPOLAMINE
     Indication: PAIN
     Dosage: UNK
     Route: 062
     Dates: start: 20170720
  25. SILVADENE [Concomitant]
     Active Substance: SILVER SULFADIAZINE
     Indication: THERMAL BURN
     Dosage: UNK, AS NEEDED
  26. IPRATROPIUM BROMIDE. [Concomitant]
     Active Substance: IPRATROPIUM BROMIDE
     Indication: HYPERSENSITIVITY
     Dosage: 0.03 %, AS NEEDED (TID )
     Route: 045
  27. LIOTHYRONINE [Concomitant]
     Active Substance: LIOTHYRONINE
     Indication: THYROID DISORDER
     Dosage: 50 UG, 1X/DAY
  28. CLOBETASOL PROPIONATE. [Concomitant]
     Active Substance: CLOBETASOL PROPIONATE
     Indication: VULVOVAGINAL PRURITUS
     Dosage: UNK, 2X/WEEK (TUES AND THURS)
     Route: 061
  29. POLYETHYLENE GLYCOL [Concomitant]
     Active Substance: POLYETHYLENE GLYCOLS
     Indication: CONSTIPATION
     Dosage: 1 DF, DAILY AS NEEDED

REACTIONS (1)
  - Pneumonia [Unknown]

NARRATIVE: CASE EVENT DATE: 201707
